FAERS Safety Report 8936462 (Version 1)
Quarter: 2012Q4

REPORT INFORMATION
  Report Type: 
  Country: US (occurrence: US)
  Receive Date: 20121130
  Receipt Date: 20121130
  Transmission Date: 20130627
  Serious: Yes (Other)
  Sender: FDA-Public Use
  Company Number: US-BAYER-2012-122409

PATIENT
  Sex: Female

DRUGS (1)
  1. CIPRO [Suspect]

REACTIONS (18)
  - Gallbladder disorder [None]
  - Osteomyelitis [None]
  - Urinary tract infection [None]
  - Hernia [None]
  - Back disorder [None]
  - Fall [None]
  - Pain [None]
  - Hypoaesthesia [None]
  - Chest pain [None]
  - Pain in extremity [None]
  - Oedema peripheral [None]
  - Dyskinesia [None]
  - Unevaluable event [None]
  - Muscular weakness [None]
  - Musculoskeletal pain [None]
  - Pain [None]
  - Abdominal pain upper [None]
  - Abdominal pain upper [None]
